FAERS Safety Report 7894484-4 (Version None)
Quarter: 2011Q4

REPORT INFORMATION
  Report Type: 
  Country: None (occurrence: None)
  Receive Date: 20111106
  Receipt Date: 20110825
  Transmission Date: 20120403
  Serious: No
  Sender: FDA-Public Use
  Company Number: US-AMGEN-USASP2011043761

PATIENT
  Age: 71 Year
  Sex: Male

DRUGS (2)
  1. ENBREL [Suspect]
     Dates: start: 20110729
  2. ENBREL [Suspect]
     Indication: RHEUMATOID ARTHRITIS
     Dosage: 50 MG, QWK
     Dates: start: 20110729

REACTIONS (6)
  - MEMORY IMPAIRMENT [None]
  - POLLAKIURIA [None]
  - PAIN [None]
  - INSOMNIA [None]
  - DENTAL CLEANING [None]
  - ABDOMINAL PAIN UPPER [None]
